FAERS Safety Report 12594284 (Version 1)
Quarter: 2016Q3

REPORT INFORMATION
  Report Type: Spontaneous
  Country: US (occurrence: US)
  Receive Date: 20160726
  Receipt Date: 20160726
  Transmission Date: 20161109
  Serious: No
  Sender: FDA-Public Use
  Company Number: US-UNITED THERAPEUTICS-UNT-2016-007962

PATIENT
  Age: 77 Year
  Sex: Female
  Weight: 77.98 kg

DRUGS (1)
  1. REMODULIN [Suspect]
     Active Substance: TREPROSTINIL
     Indication: PULMONARY HYPERTENSION
     Dosage: 0.089 ?G/KG, CONTINUING
     Route: 041
     Dates: start: 20070511

REACTIONS (5)
  - Eye oedema [Unknown]
  - Device use error [Unknown]
  - Oedema peripheral [Unknown]
  - Therapy cessation [Unknown]
  - Neuralgia [Unknown]

NARRATIVE: CASE EVENT DATE: 201604
